FAERS Safety Report 5504615-9 (Version None)
Quarter: 2007Q4

REPORT INFORMATION
  Report Type: 
  Country: None (occurrence: None)
  Receive Date: 20071101
  Receipt Date: 20071009
  Transmission Date: 20080405
  Serious: No
  Sender: FDA-Public Use
  Company Number: US-BOEHRINGER INGELHEIM PHARMACEUTICALS, INC.-2007-BP-07074BP

PATIENT
  Sex: Female

DRUGS (8)
  1. MOBIC [Suspect]
     Indication: OSTEOARTHRITIS
     Route: 048
     Dates: start: 20070401, end: 20070523
  2. MOBIC [Suspect]
     Indication: FIBROMYALGIA
  3. MOBIC [Suspect]
     Indication: PAIN IN EXTREMITY
  4. MOBIC [Suspect]
     Indication: BACK PAIN
  5. SYNTHROID [Concomitant]
  6. ZETIA [Concomitant]
  7. CYMBALTA [Concomitant]
  8. TRAZODONE HCL [Concomitant]

REACTIONS (1)
  - THROMBOPHLEBITIS [None]
